FAERS Safety Report 14957063 (Version 1)
Quarter: 2018Q2

REPORT INFORMATION
  Report Type: Spontaneous
  Country: US (occurrence: US)
  Receive Date: 20180509
  Receipt Date: 20180509
  Transmission Date: 20180711
  Serious: Yes (Other)
  Sender: FDA-Public Use
  Company Number: None

PATIENT
  Age: 80 Year
  Sex: Male
  Weight: 77.11 kg

DRUGS (1)
  1. BROMINIDINE TARTRATE 0.2% OPHT [Suspect]
     Active Substance: BRIMONIDINE TARTRATE
     Route: 061
     Dates: start: 20180419, end: 20180424

REACTIONS (2)
  - Sensation of foreign body [None]
  - Eye pain [None]

NARRATIVE: CASE EVENT DATE: 20180422
